FAERS Safety Report 6868567-1 (Version None)
Quarter: 2010Q3

REPORT INFORMATION
  Report Type: 
  Country: None (occurrence: None)
  Receive Date: 20100722
  Receipt Date: 20080602
  Transmission Date: 20110219
  Serious: No
  Sender: FDA-Public Use
  Company Number: US-PFIZER INC-2008047026

PATIENT
  Sex: Female
  Weight: 106.81 kg

DRUGS (2)
  1. CHANTIX [Suspect]
     Indication: SMOKING CESSATION THERAPY
     Dates: start: 20080530, end: 20080601
  2. WELCHOL [Concomitant]

REACTIONS (3)
  - ABDOMINAL DISTENSION [None]
  - FEELING ABNORMAL [None]
  - NIGHTMARE [None]
